FAERS Safety Report 7132967-5 (Version None)
Quarter: 2010Q4

REPORT INFORMATION
  Report Type: 
  Country: None (occurrence: None)
  Receive Date: 20101202
  Receipt Date: 20101129
  Transmission Date: 20110411
  Serious: No
  Sender: FDA-Public Use
  Company Number: US-TEVA-257424USA

PATIENT
  Sex: Male
  Weight: 63.56 kg

DRUGS (1)
  1. ALBUTEROL SULFATE AUTOHALER [Suspect]
     Indication: CHRONIC OBSTRUCTIVE PULMONARY DISEASE
     Dosage: 1-2 TIMES DAILY (2 PUFFS EACH USE) UP TO 3-4 TIMES DAILY
     Route: 055

REACTIONS (1)
  - HEADACHE [None]
